FAERS Safety Report 9025546 (Version 2)
Quarter: 2013Q1

REPORT INFORMATION
  Report Type: Spontaneous
  Country: FR (occurrence: FR)
  Receive Date: 20130122
  Receipt Date: 20130125
  Transmission Date: 20140127
  Serious: Yes (Death)
  Sender: FDA-Public Use
  Company Number: FR-ROCHE-1181905

PATIENT
  Age: 83 Year
  Sex: Female

DRUGS (5)
  1. HERCEPTIN [Suspect]
     Indication: BREAST CANCER
     Route: 065
  2. HERCEPTIN [Suspect]
     Dosage: 3RD HERCEPTIN INJECTION
     Route: 065
     Dates: start: 20130118
  3. TAXOL [Suspect]
     Indication: BREAST CANCER
     Route: 065
  4. TAXOL [Suspect]
     Route: 065
     Dates: start: 20130118
  5. ANTICOAGULANT [Concomitant]

REACTIONS (1)
  - Sudden death [Fatal]
